FAERS Safety Report 14556753 (Version 6)
Quarter: 2019Q1

REPORT INFORMATION
  Report Type: Spontaneous
  Country: US (occurrence: US)
  Receive Date: 20180221
  Receipt Date: 20190312
  Transmission Date: 20190417
  Serious: No
  Sender: FDA-Public Use
  Company Number: US-PFIZER INC-2018073024

PATIENT
  Age: 54 Year
  Sex: Female
  Weight: 55 kg

DRUGS (2)
  1. LYRICA [Suspect]
     Active Substance: PREGABALIN
     Indication: BACK PAIN
  2. LYRICA [Suspect]
     Active Substance: PREGABALIN
     Indication: FIBROMYALGIA
     Dosage: 150 MG, 2X/DAY (TAKE ONE CAPSULE TWICE DAILY)
     Route: 048
     Dates: start: 2016

REACTIONS (1)
  - Arthritis [Unknown]
